FAERS Safety Report 11705548 (Version 1)
Quarter: 2015Q4

REPORT INFORMATION
  Report Type: Spontaneous
  Country: US (occurrence: US)
  Receive Date: 20151106
  Receipt Date: 20151106
  Transmission Date: 20160304
  Serious: No
  Sender: FDA-Public Use
  Company Number: PHEH2015US022775

PATIENT
  Sex: Male

DRUGS (1)
  1. VOTRIENT [Suspect]
     Active Substance: PAZOPANIB HYDROCHLORIDE
     Indication: RENAL CANCER
     Dosage: 600 MG, QD (03 TABLETS DAILY)
     Route: 065
     Dates: start: 20150415

REACTIONS (5)
  - Diarrhoea [Unknown]
  - Lymphadenopathy [Unknown]
  - Musculoskeletal chest pain [Unknown]
  - Dysgeusia [Unknown]
  - Chest pain [Unknown]
